FAERS Safety Report 4821310-X (Version None)
Quarter: 2005Q4

REPORT INFORMATION
  Report Type: 
  Country: None (occurrence: None)
  Receive Date: 20051107
  Receipt Date: 20050801
  Transmission Date: 20060501
  Serious: No
  Sender: FDA-Public Use
  Company Number: US-GLAXOSMITHKLINE-A0568468A

PATIENT
  Age: 68 Year
  Sex: Female

DRUGS (7)
  1. AVANDAMET [Suspect]
     Dosage: 1TAB TWICE PER DAY
     Route: 048
     Dates: start: 20041101
  2. KLONOPIN [Concomitant]
  3. AMITRIPTYLINE HCL [Concomitant]
  4. PAXIL [Concomitant]
  5. BUSPAR [Concomitant]
  6. HYDROCHLOROTHIAZIDE [Concomitant]
  7. INDERAL [Concomitant]

REACTIONS (2)
  - ALOPECIA [None]
  - ONYCHOCLASIS [None]
